FAERS Safety Report 5815091-0 (Version None)
Quarter: 2008Q3

REPORT INFORMATION
  Report Type: 
  Country: None (occurrence: None)
  Receive Date: 20080718
  Receipt Date: 20080707
  Transmission Date: 20090109
  Serious: Yes (Hospitalization)
  Sender: FDA-Public Use
  Company Number: US-MERCK-0807USA01422

PATIENT
  Age: 38 Year
  Sex: Male

DRUGS (17)
  1. CANCIDAS [Suspect]
     Indication: BACTERAEMIA
     Route: 042
  2. CUBICIN [Concomitant]
     Indication: BACTERAEMIA
     Route: 065
  3. DOXYCYCLINE [Concomitant]
     Indication: BACTERAEMIA
     Route: 048
  4. FLUCONAZOLE [Concomitant]
     Indication: BACTERAEMIA
     Route: 065
  5. SULFAMETHOXAZOLE AND TRIMETHOPRIM [Concomitant]
     Indication: ESCHERICHIA BACTERAEMIA
     Route: 065
  6. SULFAMETHOXAZOLE AND TRIMETHOPRIM [Concomitant]
     Indication: BACTERAEMIA
     Route: 065
  7. CIPROFLOXACIN [Concomitant]
     Indication: ESCHERICHIA BACTERAEMIA
     Route: 048
  8. CIPROFLOXACIN [Concomitant]
     Route: 065
     Dates: start: 20080404
  9. CIPROFLOXACIN [Concomitant]
     Route: 048
  10. CIPROFLOXACIN [Concomitant]
     Indication: SEPSIS
     Route: 048
  11. CIPROFLOXACIN [Concomitant]
     Route: 065
     Dates: start: 20080404
  12. CIPROFLOXACIN [Concomitant]
     Route: 048
  13. CEFAZOLINA [Concomitant]
     Indication: ESCHERICHIA BACTERAEMIA
     Route: 042
  14. CEPHALEXIN [Concomitant]
     Indication: ESCHERICHIA BACTERAEMIA
     Route: 048
  15. VANCOMYCIN [Concomitant]
     Indication: SEPSIS
     Route: 065
     Dates: start: 20080404
  16. ZOSYN [Concomitant]
     Indication: SEPSIS
     Route: 065
     Dates: start: 20080404
  17. AUGMENTIN '125' [Concomitant]
     Indication: PROPHYLAXIS
     Route: 065

REACTIONS (11)
  - BACTERAEMIA [None]
  - BILIARY FISTULA [None]
  - CANDIDIASIS [None]
  - ENTEROCOCCAL INFECTION [None]
  - ESCHERICHIA INFECTION [None]
  - FUNGUS CULTURE POSITIVE [None]
  - SEPSIS [None]
  - SHUNT OCCLUSION [None]
  - STAPHYLOCOCCAL BACTERAEMIA [None]
  - STAPHYLOCOCCAL INFECTION [None]
  - STENT OCCLUSION [None]
